FAERS Safety Report 6375601-4 (Version None)
Quarter: 2009Q3

REPORT INFORMATION
  Report Type: 
  Country: None (occurrence: None)
  Receive Date: 20090924
  Receipt Date: 20090918
  Transmission Date: 20100115
  Serious: Yes (Life-Threatening, Hospitalization, Other)
  Sender: FDA-Public Use
  Company Number: JP-B.I. PHARMACEUTICALS,INC./RIDGEFIELD-2009-BP-08313NB

PATIENT
  Age: 75 Year
  Sex: Male

DRUGS (5)
  1. MICARDIS [Suspect]
     Indication: HYPERTENSION
     Dosage: 20 MG
     Route: 048
     Dates: start: 20090612, end: 20090714
  2. NORVASC [Suspect]
     Indication: HYPERTENSION
     Dosage: 10 MG
     Route: 048
  3. ARTIST [Suspect]
     Dosage: 2.5 MG
     Route: 048
  4. ALLOPURINOL [Suspect]
     Dosage: 0.5 MG
     Route: 048
  5. CARDENALIN [Concomitant]
     Dosage: 1 MG
     Route: 048

REACTIONS (1)
  - RENAL FAILURE ACUTE [None]
